FAERS Safety Report 6580175-9 (Version None)
Quarter: 2010Q1

REPORT INFORMATION
  Report Type: 
  Country: None (occurrence: None)
  Receive Date: 20100212
  Receipt Date: 20100205
  Transmission Date: 20100710
  Serious: Yes (Death, Other)
  Sender: FDA-Public Use
  Company Number: CL-WATSON-2010-00612

PATIENT
  Age: 13 Year
  Sex: Female

DRUGS (9)
  1. CYCLOSPORINE [Suspect]
     Indication: MYELODYSPLASTIC SYNDROME
     Dosage: 10 MG/KG, DAILY
     Dates: start: 20020101, end: 20020101
  2. CYCLOSPORINE [Suspect]
     Dosage: UNK
     Dates: start: 20040101, end: 20040101
  3. PREDNISONE TAB [Suspect]
     Indication: MYELODYSPLASTIC SYNDROME
     Dosage: 1 MG/KG, DAILY
     Dates: start: 20020101, end: 20020101
  4. PREDNISONE TAB [Suspect]
     Dosage: UNK
     Dates: start: 20040101, end: 20040101
  5. METHYLPREDNISOLONE ACETATE [Suspect]
     Indication: MYELODYSPLASTIC SYNDROME
     Dosage: 5 MG/KG, DAILY
     Dates: start: 20020101, end: 20020101
  6. METHYLPREDNISOLONE ACETATE [Suspect]
     Dosage: UNK
     Dates: start: 20040101, end: 20040101
  7. ESTROGEN NOS [Suspect]
     Indication: MYELODYSPLASTIC SYNDROME
     Dosage: 30-9- MICROG/DAY
     Dates: start: 20020101
  8. ANTILYMPHOCYTE IMMUNOGLOBULIN [Concomitant]
     Indication: MYELODYSPLASTIC SYNDROME
     Dosage: UNK
     Dates: start: 20020101, end: 20020101
  9. ANTILYMPHOCYTE IMMUNOGLOBULIN [Concomitant]
     Dosage: UNK
     Dates: start: 20040101, end: 20040101

REACTIONS (3)
  - DRUG INEFFECTIVE [None]
  - HAEMORRHAGE INTRACRANIAL [None]
  - PELIOSIS HEPATIS [None]
